FAERS Safety Report 17994827 (Version 3)
Quarter: 2020Q3

REPORT INFORMATION
  Report Type: Report from Study
  Country: US (occurrence: US)
  Receive Date: 20200708
  Receipt Date: 20200727
  Transmission Date: 20201103
  Serious: Yes (Death, Other)
  Sender: FDA-Public Use
  Company Number: US-BRISTOL-MYERS SQUIBB COMPANY-BMS-2020-054109

PATIENT
  Age: 54 Year
  Sex: Male
  Weight: 73.3 kg

DRUGS (3)
  1. IPILIMUMAB [Suspect]
     Active Substance: IPILIMUMAB
     Indication: PENILE CANCER
     Dosage: 73.3 MILLIGRAM
     Route: 042
     Dates: start: 20200225, end: 20200225
  2. CABOZANTINIB [Suspect]
     Active Substance: CABOZANTINIB
     Indication: PENILE CANCER
     Dosage: 40 MILLIGRAM, QD
     Route: 048
     Dates: start: 20200225, end: 20200313
  3. NIVOLUMAB [Suspect]
     Active Substance: NIVOLUMAB
     Indication: PENILE CANCER
     Dosage: 220 MILLIGRAM
     Route: 042
     Dates: start: 20200225, end: 20200225

REACTIONS (1)
  - Death [Fatal]

NARRATIVE: CASE EVENT DATE: 20200313
